FAERS Safety Report 18503142 (Version 1)
Quarter: 2020Q4

REPORT INFORMATION
  Report Type: Spontaneous
  Country: US (occurrence: US)
  Receive Date: 20201113
  Receipt Date: 20201113
  Transmission Date: 20210114
  Serious: No
  Sender: FDA-Public Use
  Company Number: US-PFIZER INC-2020442950

PATIENT
  Age: 67 Year
  Sex: Male
  Weight: 81.65 kg

DRUGS (2)
  1. INSULIN [Concomitant]
     Active Substance: INSULIN NOS
     Dosage: UNK(HE TAKES INSULIN EVERY 3 MINUTES DURING THE 24 HOURS)
  2. XELJANZ XR [Suspect]
     Active Substance: TOFACITINIB CITRATE
     Indication: RHEUMATOID ARTHRITIS
     Dosage: 11 MG, 1X/DAY(11MG TABLET ONCE A DAY BY MOUTH )
     Route: 048

REACTIONS (2)
  - Malaise [Not Recovered/Not Resolved]
  - Cough [Unknown]

NARRATIVE: CASE EVENT DATE: 20201105
